FAERS Safety Report 21778838 (Version 1)
Quarter: 2022Q4

REPORT INFORMATION
  Report Type: Other
  Country: IT (occurrence: None)
  Receive Date: 20221226
  Receipt Date: 20221226
  Transmission Date: 20230112
  Serious: Yes (Death)
  Sender: FDA-Public Use
  Company Number: IT-ROCHE-3250803

PATIENT

DRUGS (5)
  1. RITUXIMAB [Suspect]
     Active Substance: RITUXIMAB
     Indication: Chronic lymphocytic leukaemia recurrent
     Dosage: 375 MG/M2 ON DAY 1 OF THE FIRST CYCLE, FOLLOWED BY 500 MG/M2 IV EVERY 2 WEEKS FOR FOUR DOSES AND THE
     Route: 042
  2. RITUXIMAB [Suspect]
     Active Substance: RITUXIMAB
     Indication: Chronic lymphocytic leukaemia refractory
     Dosage: 375 MG/M2 ON DAY 1 OF THE FIRST CYCLE, FOLLOWED BY 500 MG/M2 IV EVERY 2 WEEKS FOR FOUR DOSES AND THE
     Route: 042
  3. RITUXIMAB [Suspect]
     Active Substance: RITUXIMAB
     Dosage: 375 MG/M2 ON DAY 1 OF THE FIRST CYCLE, FOLLOWED BY 500 MG/M2 IV EVERY 2 WEEKS FOR FOUR DOSES AND THE
     Route: 042
  4. IDELALISIB [Suspect]
     Active Substance: IDELALISIB
     Indication: Chronic lymphocytic leukaemia recurrent
     Route: 048
  5. IDELALISIB [Suspect]
     Active Substance: IDELALISIB
     Indication: Chronic lymphocytic leukaemia refractory

REACTIONS (1)
  - COVID-19 [Fatal]
